FAERS Safety Report 10416345 (Version 2)
Quarter: 2014Q4

REPORT INFORMATION
  Report Type: Spontaneous
  Country: US (occurrence: None)
  Receive Date: 20140826
  Receipt Date: 20141016
  Transmission Date: 20150528
  Serious: Yes (Other)
  Sender: FDA-Public Use
  Company Number: NGX_02538_2014

PATIENT
  Age: 33 Year
  Sex: Male

DRUGS (2)
  1. QUTENZA [Suspect]
     Active Substance: CAPSAICIN
     Indication: POST HERPETIC NEURALGIA
     Dosage: CUTANEOUS PATCH
     Route: 062
     Dates: start: 20140722, end: 20140722
  2. NORCO [Concomitant]
     Active Substance: ACETAMINOPHEN\HYDROCODONE BITARTRATE

REACTIONS (4)
  - Herpes zoster [None]
  - Drug ineffective [None]
  - Product adhesion issue [None]
  - Pain [None]

NARRATIVE: CASE EVENT DATE: 20140722
